FAERS Safety Report 24883584 (Version 1)
Quarter: 2025Q1

REPORT INFORMATION
  Report Type: Spontaneous
  Country: AU (occurrence: AU)
  Receive Date: 20250124
  Receipt Date: 20250124
  Transmission Date: 20250408
  Serious: Yes (Other)
  Sender: SANDOZ
  Company Number: AU-SANDOZ-SDZ2025AU003860

PATIENT
  Age: 40 Year
  Sex: Male

DRUGS (3)
  1. DAPSONE [Suspect]
     Active Substance: DAPSONE
     Indication: Ulcer
     Route: 065
  2. MYCOPHENOLATE MOFETIL [Suspect]
     Active Substance: MYCOPHENOLATE MOFETIL
     Indication: Ulcer
     Route: 065
  3. PREDNISOLONE [Suspect]
     Active Substance: PREDNISOLONE
     Indication: Ulcer
     Dosage: HIGH-DOSE PREDNISOLONE (50 MG/DAY)
     Route: 065

REACTIONS (3)
  - Ulcer [Unknown]
  - Condition aggravated [Unknown]
  - Therapeutic response decreased [Unknown]
